FAERS Safety Report 20517190 (Version 1)
Quarter: 2022Q1

REPORT INFORMATION
  Report Type: Spontaneous
  Country: US (occurrence: None)
  Receive Date: 20220224
  Receipt Date: 20220224
  Transmission Date: 20220423
  Serious: No
  Sender: FDA-Public Use
  Company Number: None

PATIENT

DRUGS (1)
  1. BOTOX [Suspect]
     Active Substance: ONABOTULINUMTOXINA
     Dosage: 600 UNITS OTHER INTRAMUSCULAR
     Route: 030
     Dates: start: 202202

REACTIONS (1)
  - Prescribed overdose [None]

NARRATIVE: CASE EVENT DATE: 20220224
